FAERS Safety Report 5685950-0 (Version None)
Quarter: 2008Q1

REPORT INFORMATION
  Report Type: 
  Country: None (occurrence: None)
  Receive Date: 20080328
  Receipt Date: 20070924
  Transmission Date: 20080703
  Serious: No
  Sender: FDA-Public Use
  Company Number: US-BAYER-US-2007-036161

PATIENT
  Age: 26 Year
  Sex: Female
  Weight: 100 kg

DRUGS (1)
  1. MIRENA [Suspect]
     Indication: CONTRACEPTION
     Route: 015
     Dates: start: 20060906

REACTIONS (4)
  - AMENORRHOEA [None]
  - CERVICITIS HUMAN PAPILLOMA VIRUS [None]
  - VAGINAL DISCHARGE [None]
  - VEIN DISCOLOURATION [None]
